FAERS Safety Report 19599320 (Version 1)
Quarter: 2021Q3

REPORT INFORMATION
  Report Type: Spontaneous
  Country: US (occurrence: US)
  Receive Date: 20210722
  Receipt Date: 20210722
  Transmission Date: 20211014
  Serious: Yes (Other)
  Sender: FDA-Public Use
  Company Number: None

PATIENT
  Age: 73 Year
  Sex: Female
  Weight: 61.05 kg

DRUGS (2)
  1. CASIRIVIMAB 1332 MG/11.1 [Concomitant]
     Active Substance: CASIRIVIMAB
  2. IMDEVIMAB 1332MG/11.1 ML [Suspect]
     Active Substance: IMDEVIMAB
     Indication: COVID-19
     Dates: start: 20210716, end: 20210716

REACTIONS (2)
  - Chills [None]
  - Body temperature increased [None]

NARRATIVE: CASE EVENT DATE: 20210716
